FAERS Safety Report 12783923 (Version 2)
Quarter: 2016Q4

REPORT INFORMATION
  Report Type: Spontaneous
  Country: None (occurrence: US)
  Receive Date: 20160927
  Receipt Date: 20161007
  Transmission Date: 20170207
  Serious: No
  Sender: FDA-Public Use
  Company Number: US-MEDAC PHARMA, INC.-1057734

PATIENT
  Age: 44 Year
  Sex: Female

DRUGS (2)
  1. RASUVO [Suspect]
     Active Substance: METHOTREXATE SODIUM
     Dates: start: 201608
  2. SIMPONI [Concomitant]
     Active Substance: GOLIMUMAB

REACTIONS (5)
  - Accidental exposure to product [Recovered/Resolved]
  - Device issue [Recovered/Resolved]
  - Drug dose omission [Recovered/Resolved]
  - No adverse event [None]
  - Exposure via direct contact [Recovered/Resolved]
